FAERS Safety Report 11643444 (Version 2)
Quarter: 2015Q4

REPORT INFORMATION
  Report Type: Spontaneous
  Country: FR (occurrence: FR)
  Receive Date: 20151020
  Receipt Date: 20151202
  Transmission Date: 20160304
  Serious: Yes (Hospitalization)
  Sender: FDA-Public Use
  Company Number: FR-ROCHE-1647993

PATIENT
  Age: 46 Year
  Sex: Male

DRUGS (3)
  1. MABTHERA [Suspect]
     Active Substance: RITUXIMAB
     Indication: ANTISYNTHETASE SYNDROME
     Route: 065
     Dates: start: 20150519, end: 20150608
  2. CORTANCYL [Suspect]
     Active Substance: PREDNISONE
     Indication: ANTISYNTHETASE SYNDROME
     Route: 065
     Dates: start: 20150107
  3. IMUREL [Suspect]
     Active Substance: AZATHIOPRINE SODIUM
     Indication: ANTISYNTHETASE SYNDROME
     Route: 065
     Dates: start: 20150209, end: 20150729

REACTIONS (1)
  - Kaposi^s sarcoma [Unknown]

NARRATIVE: CASE EVENT DATE: 20150909
